FAERS Safety Report 7463986-7 (Version None)
Quarter: 2011Q2

REPORT INFORMATION
  Report Type: 
  Country: None (occurrence: None)
  Receive Date: 20110506
  Receipt Date: 20081001
  Transmission Date: 20111010
  Serious: Yes (Other)
  Sender: FDA-Public Use
  Company Number: US-BAYER-200825378NA

PATIENT
  Sex: Female
  Weight: 52 kg

DRUGS (28)
  1. MAGNEVIST [Suspect]
     Indication: NUCLEAR MAGNETIC RESONANCE IMAGING
     Dosage: 30 ML, ONCE
     Dates: start: 20040726, end: 20040726
  2. GENTAMICIN [Concomitant]
  3. LOPRESSOR [Concomitant]
  4. HEPARIN [Concomitant]
  5. CARDIZEM CD [Concomitant]
  6. OPTIMARK [Suspect]
     Indication: NUCLEAR MAGNETIC RESONANCE IMAGING
  7. PROHANCE [Suspect]
     Dosage: UNK
     Dates: start: 20060925
  8. FOLIC ACID W/VITAMIN B NOS [Concomitant]
  9. NEURONTIN [Concomitant]
  10. PHOSLO [Concomitant]
  11. PREDNISONE [Concomitant]
  12. LEVOCARNITINE [Concomitant]
  13. PLAQUENIL [Concomitant]
  14. PROAMATINE [Concomitant]
  15. NEPHROCAPS [Concomitant]
  16. RENAGEL [Concomitant]
  17. VANCOMYCIN [Concomitant]
  18. VENOFER [Concomitant]
  19. MAGNEVIST [Suspect]
     Dosage: 28 ML, ONCE
     Dates: start: 20041220, end: 20041220
  20. SOLU-CORTEF [Concomitant]
  21. ARANESP [Concomitant]
  22. OMNISCAN [Suspect]
     Indication: NUCLEAR MAGNETIC RESONANCE IMAGING
  23. PROHANCE [Suspect]
     Indication: NUCLEAR MAGNETIC RESONANCE IMAGING
     Dosage: UNK
     Dates: start: 20060720
  24. COUMADIN [Concomitant]
  25. EPOGEN [Concomitant]
  26. MAGNEVIST [Suspect]
     Dosage: 30 ML, ONCE
     Route: 042
     Dates: start: 20050404, end: 20050404
  27. MULTIHANCE [Suspect]
     Indication: NUCLEAR MAGNETIC RESONANCE IMAGING
     Dosage: 20 ML, UNK
     Dates: start: 20060202, end: 20060202
  28. RENAPHRO [Concomitant]

REACTIONS (14)
  - NEPHROGENIC SYSTEMIC FIBROSIS [None]
  - ANXIETY [None]
  - GENERAL PHYSICAL HEALTH DETERIORATION [None]
  - PRURITUS [None]
  - LOWER EXTREMITY MASS [None]
  - FIBROSIS [None]
  - SKIN DISCOLOURATION [None]
  - OEDEMA PERIPHERAL [None]
  - INJURY [None]
  - EMOTIONAL DISTRESS [None]
  - PAIN [None]
  - MOBILITY DECREASED [None]
  - SKIN INDURATION [None]
  - SKIN HYPERTROPHY [None]
